FAERS Safety Report 8370151-8 (Version None)
Quarter: 2012Q2

REPORT INFORMATION
  Report Type: 
  Country: None (occurrence: None)
  Receive Date: 20120518
  Receipt Date: 20120507
  Transmission Date: 20120825
  Serious: Yes (Hospitalization, Other)
  Sender: FDA-Public Use
  Company Number: CN-JNJFOC-20110807745

PATIENT
  Age: 37 Year
  Sex: Male

DRUGS (1)
  1. SPORANOX [Suspect]
     Indication: ONYCHOMYCOSIS
     Dosage: 2 CAPSULES EACH TIME
     Route: 048
     Dates: start: 20110803, end: 20110810

REACTIONS (1)
  - ERECTILE DYSFUNCTION [None]
